FAERS Safety Report 8045991-5 (Version None)
Quarter: 2012Q1

REPORT INFORMATION
  Report Type: 
  Country: None (occurrence: None)
  Receive Date: 20120113
  Receipt Date: 20120111
  Transmission Date: 20120608
  Serious: Yes (Other)
  Sender: FDA-Public Use
  Company Number: US-PFIZER INC-2012008838

PATIENT
  Sex: Male
  Weight: 113.38 kg

DRUGS (3)
  1. CARDURA [Suspect]
     Indication: BLOOD CHOLESTEROL DECREASED
     Dosage: 8 MG, 1X/DAY
     Route: 048
     Dates: start: 20080101
  2. GLYBURIDE [Concomitant]
     Indication: TYPE 2 DIABETES MELLITUS
     Dosage: UNK
  3. JANUMET [Concomitant]
     Indication: TYPE 2 DIABETES MELLITUS
     Dosage: UNK

REACTIONS (2)
  - CEREBROVASCULAR ACCIDENT [None]
  - LABORATORY TEST ABNORMAL [None]
